FAERS Safety Report 6187422-6 (Version None)
Quarter: 2009Q2

REPORT INFORMATION
  Report Type: 
  Country: None (occurrence: None)
  Receive Date: 20090508
  Receipt Date: 20090428
  Transmission Date: 20091009
  Serious: Yes (Other)
  Sender: FDA-Public Use
  Company Number: 232069K08USA

PATIENT
  Age: 50 Year
  Sex: Female

DRUGS (5)
  1. REBIF [Suspect]
     Indication: MULTIPLE SCLEROSIS
     Dosage: 44 MCG, 22 MCG, 3 IN 1 WEEKS, SUBCUTANEOUS
     Route: 058
     Dates: start: 20070606, end: 20080101
  2. REBIF [Suspect]
     Indication: MULTIPLE SCLEROSIS
     Dosage: 44 MCG, 22 MCG, 3 IN 1 WEEKS, SUBCUTANEOUS
     Route: 058
     Dates: start: 20080101, end: 20090301
  3. CLARITIN [Concomitant]
  4. UNSPECIFIED INHALER (ALL OTHER THERAPEUTIC PRODUCTS) [Concomitant]
  5. NEXIUM [Concomitant]

REACTIONS (6)
  - ARTHRALGIA [None]
  - HYPERTENSION [None]
  - INFLUENZA LIKE ILLNESS [None]
  - LUNG NEOPLASM [None]
  - MULTIPLE SCLEROSIS RELAPSE [None]
  - VASCULITIS [None]
